FAERS Safety Report 25264352 (Version 1)
Quarter: 2025Q2

REPORT INFORMATION
  Report Type: Spontaneous
  Country: QA (occurrence: QA)
  Receive Date: 20250502
  Receipt Date: 20250502
  Transmission Date: 20250716
  Serious: Yes (Death, Hospitalization, Other)
  Sender: STRIDES
  Company Number: QA-STRIDES ARCOLAB LIMITED-2025SP005378

PATIENT
  Age: 40 Year
  Sex: Male

DRUGS (5)
  1. ACYCLOVIR [Suspect]
     Active Substance: ACYCLOVIR
     Indication: Pyrexia
     Route: 065
  2. ACYCLOVIR [Suspect]
     Active Substance: ACYCLOVIR
     Indication: Herpes simplex
  3. ETOPOSIDE [Suspect]
     Active Substance: ETOPOSIDE
     Indication: Haemophagocytic lymphohistiocytosis
     Route: 065
  4. METHYLPREDNISOLONE [Suspect]
     Active Substance: METHYLPREDNISOLONE
     Indication: Haemophagocytic lymphohistiocytosis
     Route: 042
  5. EMAPALUMAB [Suspect]
     Active Substance: EMAPALUMAB
     Indication: Haemophagocytic lymphohistiocytosis
     Route: 065

REACTIONS (7)
  - Condition aggravated [Fatal]
  - Drug ineffective [Fatal]
  - Haemodynamic instability [Unknown]
  - Respiratory failure [Unknown]
  - Condition aggravated [Unknown]
  - Encephalopathy [Unknown]
  - Drug ineffective for unapproved indication [Unknown]
